FAERS Safety Report 24566433 (Version 1)
Quarter: 2024Q4

REPORT INFORMATION
  Report Type: Spontaneous
  Country: US (occurrence: None)
  Receive Date: 20241029
  Receipt Date: 20241029
  Transmission Date: 20250114
  Serious: Yes (Hospitalization)
  Sender: Public
  Company Number: None

PATIENT
  Age: 55 Year
  Sex: Male

DRUGS (1)
  1. HUMIRA [Suspect]
     Active Substance: ADALIMUMAB
     Indication: Psoriasis
     Dosage: OTHER FREQUENCY : ONCE EVERY 2 WEEKS;?
     Route: 058
     Dates: start: 20240801, end: 20241029

REACTIONS (3)
  - Amnesia [None]
  - Neurological infection [None]
  - Viral infection [None]

NARRATIVE: CASE EVENT DATE: 20240913
